FAERS Safety Report 8514726-1 (Version None)
Quarter: 2012Q3

REPORT INFORMATION
  Report Type: 
  Country: None (occurrence: None)
  Receive Date: 20120717
  Receipt Date: 20120627
  Transmission Date: 20120928
  Serious: No
  Sender: FDA-Public Use
  Company Number: US-COVIDIEN/TYCO HEALTHCARE/MALLINCKRODT-T201202779

PATIENT

DRUGS (2)
  1. OXYCODONE HCL [Concomitant]
  2. MORPHINE [Suspect]
     Dosage: 100 MG, UNK

REACTIONS (2)
  - DRUG DISPENSING ERROR [None]
  - WRONG TECHNIQUE IN DRUG USAGE PROCESS [None]
